FAERS Safety Report 17046617 (Version 1)
Quarter: 2019Q4

REPORT INFORMATION
  Report Type: Spontaneous
  Country: US (occurrence: US)
  Receive Date: 20191119
  Receipt Date: 20191119
  Transmission Date: 20200122
  Serious: No
  Sender: FDA-Public Use
  Company Number: US-ELI_LILLY_AND_COMPANY-US201911005805

PATIENT
  Age: 63 Year
  Sex: Female

DRUGS (2)
  1. HUMALOG [Suspect]
     Active Substance: INSULIN LISPRO
     Dosage: UNK, PRN (SLIDING SCALE)
     Route: 058
     Dates: start: 1999
  2. HUMALOG [Suspect]
     Active Substance: INSULIN LISPRO
     Indication: TYPE 2 DIABETES MELLITUS
     Dosage: UNK, PRN (SLIDING SCALE)
     Route: 058
     Dates: start: 1999

REACTIONS (3)
  - Wrong product administered [Recovering/Resolving]
  - Blood glucose increased [Recovering/Resolving]
  - Product storage error [Recovering/Resolving]
